FAERS Safety Report 22068323 (Version 1)
Quarter: 2023Q1

REPORT INFORMATION
  Report Type: Spontaneous
  Country: IT (occurrence: IT)
  Receive Date: 20230307
  Receipt Date: 20230307
  Transmission Date: 20230418
  Serious: Yes (Other)
  Sender: FDA-Public Use
  Company Number: None

PATIENT
  Age: 45 Year
  Sex: Male

DRUGS (4)
  1. PACLITAXEL [Suspect]
     Active Substance: PACLITAXEL
     Indication: Lung neoplasm malignant
     Dates: start: 20221020
  2. YERVOY [Concomitant]
     Active Substance: IPILIMUMAB
     Indication: Lung neoplasm malignant
     Dates: start: 20221020
  3. NIVOLUMAB [Concomitant]
     Active Substance: NIVOLUMAB
     Indication: Lung neoplasm malignant
     Dates: start: 20221020
  4. CARBOPLATIN [Concomitant]
     Active Substance: CARBOPLATIN
     Indication: Lung neoplasm malignant
     Dates: start: 20221020

REACTIONS (3)
  - Abdominal pain upper [Recovering/Resolving]
  - Rash [Recovering/Resolving]
  - Spinal pain [Recovering/Resolving]

NARRATIVE: CASE EVENT DATE: 20221020
